FAERS Safety Report 14786158 (Version 1)
Quarter: 2018Q2

REPORT INFORMATION
  Report Type: Spontaneous
  Country: BR (occurrence: BR)
  Receive Date: 20180420
  Receipt Date: 20180420
  Transmission Date: 20180711
  Serious: Yes (Other)
  Sender: FDA-Public Use
  Company Number: BR-MYLANLABS-2018M1024848

PATIENT
  Sex: Male

DRUGS (8)
  1. VANCOMYCIN [Suspect]
     Active Substance: VANCOMYCIN
     Dosage: 15 MG/KG 8/8H; STARTED ON DAY 44 AND STOPPED ON DAY 65
     Route: 042
  2. MEROPENEM. [Concomitant]
     Active Substance: MEROPENEM
     Indication: NECROTISING ENTEROCOLITIS NEONATAL
     Dosage: 20 MG/KG 8/8H; STARTED ON DAY 17 STOPPED ON DAY 31; RESTARTED ON DAY 44
     Route: 065
  3. FLUCONAZOLE. [Concomitant]
     Active Substance: FLUCONAZOLE
     Indication: PRODUCT USED FOR UNKNOWN INDICATION
     Route: 065
  4. BUDESONIDE. [Concomitant]
     Active Substance: BUDESONIDE
     Indication: PRODUCT USED FOR UNKNOWN INDICATION
     Route: 065
  5. AMPHOTERICIN B. [Concomitant]
     Active Substance: AMPHOTERICIN B
     Indication: FUNGAL INFECTION
     Dosage: 1 MG/KG 24/24H; STARTED ON DAY 31, LATER DISCONTINUED
     Route: 065
  6. MEROPENEM. [Concomitant]
     Active Substance: MEROPENEM
     Dosage: 40 MG/KG 8/8H; STARTED ON DAY 44 AND STOPPED LATER
     Route: 065
  7. VANCOMYCIN [Suspect]
     Active Substance: VANCOMYCIN
     Indication: NECROTISING ENTEROCOLITIS NEONATAL
     Dosage: 10 MG/KG 8/8H; STOPPED ON DAY 38 AND RESTARTED ON DAY 44
     Route: 042
  8. CIPROFLOXACIN. [Concomitant]
     Active Substance: CIPROFLOXACIN
     Indication: PRODUCT USED FOR UNKNOWN INDICATION
     Route: 065

REACTIONS (3)
  - Neutropenia [Recovered/Resolved]
  - Leukopenia [Recovered/Resolved]
  - Thrombocytopenia [Recovered/Resolved]
